FAERS Safety Report 7719270-7 (Version None)
Quarter: 2011Q3

REPORT INFORMATION
  Report Type: 
  Country: None (occurrence: None)
  Receive Date: 20110824
  Receipt Date: 20110811
  Transmission Date: 20111222
  Serious: Yes (Hospitalization, Other)
  Sender: FDA-Public Use
  Company Number: JPI-P-012125

PATIENT
  Age: 36 Year
  Sex: Female
  Weight: 106.5953 kg

DRUGS (13)
  1. IMIPRAMINE [Concomitant]
  2. AZELASTINE HCL [Concomitant]
  3. DEXTROAMPHETAMINE [Concomitant]
  4. ATENOLOL [Concomitant]
  5. METHYLPHENIDATE [Concomitant]
  6. XYREM [Suspect]
     Indication: CATAPLEXY
     Dosage: ( , 2 IN 1 D) , ORAL
     Route: 048
     Dates: start: 20050908
  7. PROVIGIL [Suspect]
     Indication: NARCOLEPSY
     Dates: start: 20110721
  8. DIVALPROEX SODIUM [Concomitant]
  9. VENLAFAXINE HYDROCHLORIDE [Concomitant]
  10. ESOMEPRAZOLE SODIUM [Concomitant]
  11. TOPIRAMATE [Concomitant]
  12. LISINOPRIL [Concomitant]
  13. SIMVASTATIN [Concomitant]

REACTIONS (11)
  - DIABETES MELLITUS [None]
  - EMBOLIC STROKE [None]
  - FATIGUE [None]
  - HEADACHE [None]
  - THERAPEUTIC RESPONSE DECREASED [None]
  - BIPOLAR DISORDER [None]
  - PARANOIA [None]
  - INTRACRANIAL VENOUS SINUS THROMBOSIS [None]
  - SUICIDAL IDEATION [None]
  - POLYCYSTIC OVARIES [None]
  - CONSTIPATION [None]
